FAERS Safety Report 13158159 (Version 1)
Quarter: 2017Q1

REPORT INFORMATION
  Report Type: Report from Study
  Country: None (occurrence: US)
  Receive Date: 20170127
  Receipt Date: 20170127
  Transmission Date: 20170428
  Serious: Yes (Hospitalization, Other)
  Sender: FDA-Public Use
  Company Number: US-ABBVIE-17K-163-1845588-00

PATIENT
  Age: 42 Year
  Sex: Female

DRUGS (6)
  1. HUMIRA [Suspect]
     Active Substance: ADALIMUMAB
     Indication: CROHN^S DISEASE
     Route: 058
     Dates: start: 2012, end: 2016
  2. HUMIRA [Suspect]
     Active Substance: ADALIMUMAB
     Route: 058
     Dates: start: 201602
  3. ZYRTEC [Concomitant]
     Active Substance: CETIRIZINE HYDROCHLORIDE
     Indication: RHINITIS
  4. ZOLOFT [Concomitant]
     Active Substance: SERTRALINE HYDROCHLORIDE
     Indication: DEPRESSION
  5. LISINOPRIL/HCTZ [Concomitant]
     Active Substance: HYDROCHLOROTHIAZIDE\LISINOPRIL
     Indication: HYPERTENSION
  6. VITAMIN B12 [Concomitant]
     Active Substance: CYANOCOBALAMIN
     Indication: PRODUCT USED FOR UNKNOWN INDICATION

REACTIONS (24)
  - Fall [Recovered/Resolved]
  - C-reactive protein increased [Unknown]
  - Upper respiratory tract infection [Recovered/Resolved]
  - Fungal infection [Recovering/Resolving]
  - Drug level decreased [Recovered/Resolved]
  - Intestinal stenosis [Recovered/Resolved]
  - Blood potassium decreased [Recovering/Resolving]
  - Seizure [Unknown]
  - Mental impairment [Recovering/Resolving]
  - Gastrointestinal inflammation [Recovered/Resolved]
  - Small intestinal obstruction [Recovered/Resolved]
  - Blood bicarbonate decreased [Unknown]
  - Dry eye [Not Recovered/Not Resolved]
  - Candida infection [Recovering/Resolving]
  - Seizure [Recovered/Resolved]
  - Postoperative adhesion [Recovered/Resolved]
  - Blood lactic acid increased [Unknown]
  - Fatigue [Not Recovered/Not Resolved]
  - Post procedural diarrhoea [Not Recovered/Not Resolved]
  - Small intestinal obstruction [Recovered/Resolved]
  - Dehydration [Recovering/Resolving]
  - Syncope [Recovered/Resolved]
  - Drug metabolising enzyme increased [Unknown]
  - Sinus congestion [Recovered/Resolved]

NARRATIVE: CASE EVENT DATE: 201602
